FAERS Safety Report 9869024 (Version 1)
Quarter: 2014Q1

REPORT INFORMATION
  Report Type: Report from Study
  Country: MX (occurrence: MX)
  Receive Date: 20140205
  Receipt Date: 20140205
  Transmission Date: 20141002
  Serious: Yes (Hospitalization)
  Sender: FDA-Public Use
  Company Number: MX-ROCHE-1343867

PATIENT
  Sex: Female

DRUGS (3)
  1. RANIBIZUMAB [Suspect]
     Indication: PROPHYLAXIS
     Dosage: 0.05 ML
     Route: 050
  2. RANIBIZUMAB [Suspect]
     Indication: DIABETES MELLITUS
  3. RANIBIZUMAB [Suspect]
     Indication: OFF LABEL USE

REACTIONS (5)
  - Urinary tract infection [Not Recovered/Not Resolved]
  - Urinary tract disorder [Not Recovered/Not Resolved]
  - Diabetes mellitus [Not Recovered/Not Resolved]
  - Nephrolithiasis [Not Recovered/Not Resolved]
  - Renal disorder [Not Recovered/Not Resolved]
